FAERS Safety Report 7353328-X (Version None)
Quarter: 2011Q1

REPORT INFORMATION
  Report Type: 
  Country: None (occurrence: None)
  Receive Date: 20110310
  Receipt Date: 20110310
  Transmission Date: 20110831
  Serious: Yes (Life-Threatening, Hospitalization)
  Sender: FDA-Public Use
  Company Number: None

PATIENT
  Age: 84 Year
  Sex: Female
  Weight: 58.0604 kg

DRUGS (1)
  1. LEVAQUIN [Suspect]
     Indication: BRONCHITIS
     Dosage: 500 MG 1 TAB 1-DAY
     Dates: start: 20100830

REACTIONS (8)
  - MALAISE [None]
  - OSTEOMYELITIS ACUTE [None]
  - DEHYDRATION [None]
  - POOR QUALITY SLEEP [None]
  - HEADACHE [None]
  - MUSCULAR WEAKNESS [None]
  - NAUSEA [None]
  - RASH [None]
